FAERS Safety Report 9665035 (Version 2)
Quarter: 2013Q4

REPORT INFORMATION
  Report Type: Spontaneous
  Country: GB (occurrence: GB)
  Receive Date: 20131101
  Receipt Date: 20131101
  Transmission Date: 20140711
  Serious: Yes (Death, Life-Threatening, Hospitalization, Disabling)
  Sender: FDA-Public Use
  Company Number: PHFR2013GB002277

PATIENT
  Sex: Male
  Weight: 80 kg

DRUGS (6)
  1. CLOZAPINE [Suspect]
     Indication: SCHIZOPHRENIA
     Dosage: 300 MG, UNK
     Route: 048
     Dates: start: 20050406, end: 20121218
  2. CLOZARIL [Suspect]
     Indication: SCHIZOPHRENIA
     Dosage: 300 MG, UNK
     Route: 048
     Dates: start: 20050506, end: 20121218
  3. LEVOTHYROXINE [Concomitant]
     Indication: HYPOTHYROIDISM
     Dosage: 200 MG, UNK
     Route: 048
     Dates: start: 20060619
  4. LANSOPRAZOLE [Concomitant]
     Indication: GASTROOESOPHAGEAL REFLUX DISEASE
     Dosage: 15 MG, UNK
     Route: 048
     Dates: start: 20021021
  5. PHENYTOIN [Concomitant]
     Indication: EPILEPSY
     Dosage: 300 MG, UNK
     Route: 048
  6. KWELLS [Concomitant]
     Indication: SALIVARY HYPERSECRETION
     Dosage: 150 MG, UNK
     Route: 048
     Dates: start: 20050506, end: 201212

REACTIONS (3)
  - Death [Fatal]
  - Myocarditis [Not Recovered/Not Resolved]
  - Cardiomyopathy [Not Recovered/Not Resolved]
